FAERS Safety Report 8801205 (Version 1)
Quarter: 2012Q4

REPORT INFORMATION
  Report Type: 
  Country: CA (occurrence: CA)
  Receive Date: 20120920
  Receipt Date: 20120920
  Transmission Date: 20130627
  Serious: Yes (Disabling)
  Sender: FDA-Public Use
  Company Number: CA-ROCHE-1132736

PATIENT
  Age: 29 Year
  Sex: Male
  Weight: 74 kg

DRUGS (8)
  1. PEGASYS [Suspect]
     Indication: PRODUCT USED FOR UNKNOWN INDICATION
     Route: 058
  2. PEGASYS [Suspect]
     Route: 048
  3. RIBAVIRIN [Suspect]
     Indication: PRODUCT USED FOR UNKNOWN INDICATION
     Route: 065
  4. ANTIHEMOPHILIC FACTOR [Concomitant]
     Route: 042
  5. EFFEXOR XR [Concomitant]
     Route: 048
  6. NAPROXEN [Concomitant]
     Route: 048
  7. RANITIDINE [Concomitant]
     Route: 048
  8. SULFAMETHOXAZOLE/TRIMETHOPRIM [Concomitant]
     Route: 048

REACTIONS (1)
  - VIIth nerve paralysis [Unknown]
